FAERS Safety Report 7852170-0 (Version None)
Quarter: 2011Q4

REPORT INFORMATION
  Report Type: 
  Country: None (occurrence: None)
  Receive Date: 20111026
  Receipt Date: 20111020
  Transmission Date: 20120403
  Serious: Yes (Other)
  Sender: FDA-Public Use
  Company Number: US-PFIZER INC-2011164278

PATIENT
  Sex: Female
  Weight: 63 kg

DRUGS (13)
  1. LIPITOR [Suspect]
     Indication: BLOOD CHOLESTEROL ABNORMAL
     Dosage: 40 MG, UNK
     Route: 048
  2. ZMAX [Concomitant]
     Dosage: UNK
  3. TOPAMAX [Concomitant]
     Dosage: 10 MG, UNK
  4. TRAMADOL [Concomitant]
     Indication: NEUROPATHY PERIPHERAL
     Dosage: UNK
  5. ZYRTEC [Concomitant]
     Indication: HYPERSENSITIVITY
     Dosage: UNK
  6. LIPITOR [Suspect]
     Dosage: 40 MG, UNK
  7. BYSTOLIC [Concomitant]
     Dosage: UNK
  8. TRAMADOL [Concomitant]
     Indication: FIBROMYALGIA
  9. VITAMIN B-12 [Concomitant]
     Dosage: UNK
  10. LIPITOR [Suspect]
     Indication: BLOOD CHOLESTEROL INCREASED
     Dosage: 80MG, UNK
  11. LIPITOR [Suspect]
     Dosage: 20 MG, UNK
  12. MULTI-VITAMINS [Concomitant]
     Dosage: UNK
  13. FISH OIL [Concomitant]
     Dosage: UNK

REACTIONS (4)
  - BLOOD CHOLESTEROL INCREASED [None]
  - JOINT STIFFNESS [None]
  - CARPAL TUNNEL SYNDROME [None]
  - CEREBROVASCULAR ACCIDENT [None]
